FAERS Safety Report 9056572 (Version 3)
Quarter: 2013Q2

REPORT INFORMATION
  Report Type: Report from Study
  Country: US (occurrence: US)
  Receive Date: 20130204
  Receipt Date: 20130531
  Transmission Date: 20140414
  Serious: Yes (Hospitalization)
  Sender: FDA-Public Use
  Company Number: US-ABBOTT-13P-163-1041752-00

PATIENT
  Age: 67 Year
  Sex: Male

DRUGS (8)
  1. HUMIRA [Suspect]
     Indication: PSORIASIS
     Route: 058
     Dates: start: 200907
  2. HUMIRA [Suspect]
     Route: 058
     Dates: start: 20100329, end: 20120427
  3. HUMIRA [Suspect]
     Route: 058
     Dates: start: 20120725
  4. CLOBETASOL [Concomitant]
     Indication: PSORIASIS
     Dates: start: 20090824
  5. TRIAMCINOLONE ACETONIDE [Concomitant]
     Indication: PSORIASIS
     Dates: start: 20090508
  6. BACTRIM [Concomitant]
     Indication: IMPETIGO
     Dosage: TMB DS 1TAB BID
     Dates: start: 20120206, end: 20120213
  7. DOXYCYCLINE [Concomitant]
     Indication: IMPETIGO
     Dates: start: 20120213, end: 20120220
  8. DOXYCYCLINE [Concomitant]
     Dates: start: 20120308

REACTIONS (1)
  - Lobar pneumonia [Recovered/Resolved]
